FAERS Safety Report 9154451 (Version 1)
Quarter: 2013Q1

REPORT INFORMATION
  Report Type: Spontaneous
  Country: AU (occurrence: None)
  Receive Date: 20130207
  Receipt Date: 20130207
  Transmission Date: 20140127
  Serious: No
  Sender: FDA-Public Use
  Company Number: 2013-01528

PATIENT
  Age: 41 Year
  Sex: Male

DRUGS (4)
  1. LAMOTRIGINE (LAMOTRIGINE) [Suspect]
     Indication: AFFECTIVE DISORDER
  2. NALTREXONE [Suspect]
  3. ANTABUSE (DISULFIRAM) [Suspect]
     Indication: PRODUCT USED FOR UNKNOWN INDICATION
  4. LOVAN [Suspect]
     Indication: AFFECTIVE DISORDER

REACTIONS (3)
  - Sedation [None]
  - Fatigue [None]
  - Hypersomnia [None]
